FAERS Safety Report 15862808 (Version 2)
Quarter: 2019Q3

REPORT INFORMATION
  Report Type: Spontaneous
  Country: US (occurrence: US)
  Receive Date: 20190124
  Receipt Date: 20190819
  Transmission Date: 20191004
  Serious: No
  Sender: FDA-Public Use
  Company Number: US-MYLANLABS-2019M1003254

PATIENT
  Sex: Female
  Weight: 77.55 kg

DRUGS (1)
  1. ESTRADIOL TRANSDERMAL SYSTEM [Suspect]
     Active Substance: ESTRADIOL
     Indication: PRODUCT USED FOR UNKNOWN INDICATION
     Dosage: UNK UNK, QW

REACTIONS (4)
  - Skin erosion [Unknown]
  - Off label use [Unknown]
  - Product adhesion issue [Unknown]
  - Application site erythema [Unknown]
